FAERS Safety Report 17956022 (Version 1)
Quarter: 2020Q2

REPORT INFORMATION
  Report Type: Spontaneous
  Country: US (occurrence: US)
  Receive Date: 20200629
  Receipt Date: 20200629
  Transmission Date: 20200714
  Serious: No
  Sender: FDA-Public Use
  Company Number: US-PFIZER INC-2020247461

PATIENT
  Age: 72 Year
  Sex: Female
  Weight: 48.3 kg

DRUGS (4)
  1. TYVASO [Suspect]
     Active Substance: TREPROSTINIL
     Dosage: UNK, 4X/DAY (18-54 ?G, QID, INHALATION)
     Route: 055
  2. REVATIO [Suspect]
     Active Substance: SILDENAFIL CITRATE
     Dosage: UNK
  3. TYVASO [Suspect]
     Active Substance: TREPROSTINIL
     Indication: PULMONARY ARTERIAL HYPERTENSION
     Dosage: UNK
     Route: 055
     Dates: start: 20180614
  4. AMBRISENTAN [Suspect]
     Active Substance: AMBRISENTAN
     Dosage: UNK

REACTIONS (3)
  - Oxygen saturation decreased [Unknown]
  - Nasal dryness [Unknown]
  - Nasal congestion [Unknown]
